FAERS Safety Report 10648223 (Version 1)
Quarter: 2014Q4

REPORT INFORMATION
  Report Type: Spontaneous
  Country: US (occurrence: US)
  Receive Date: 20141212
  Receipt Date: 20141212
  Transmission Date: 20150529
  Serious: No
  Sender: FDA-Public Use
  Company Number: US-ELI_LILLY_AND_COMPANY-US201411006338

PATIENT
  Sex: Male

DRUGS (3)
  1. AXIRON [Suspect]
     Active Substance: TESTOSTERONE
     Indication: HYPOGONADISM
     Dosage: 60 MG, UNK
     Route: 065
  2. AXIRON [Suspect]
     Active Substance: TESTOSTERONE
     Dosage: 90 MG, UNK
     Route: 065
  3. AXIRON [Suspect]
     Active Substance: TESTOSTERONE
     Dosage: 120 MG, UNK
     Route: 065

REACTIONS (1)
  - Blood testosterone decreased [Unknown]
